FAERS Safety Report 22642123 (Version 5)
Quarter: 2023Q4

REPORT INFORMATION
  Report Type: Report from Study
  Country: CN (occurrence: CN)
  Receive Date: 20230626
  Receipt Date: 20231103
  Transmission Date: 20240110
  Serious: Yes (Hospitalization)
  Sender: FDA-Public Use
  Company Number: CN-ANTENGENE-20230601768

PATIENT
  Age: 57 Year
  Sex: Female
  Weight: 70 kg

DRUGS (10)
  1. SELINEXOR [Suspect]
     Active Substance: SELINEXOR
     Indication: Plasma cell myeloma
     Dosage: 100 MG, WEEKLY
     Route: 048
     Dates: start: 20220301, end: 20220414
  2. SELINEXOR [Suspect]
     Active Substance: SELINEXOR
     Dosage: 80 MG, WEEKLY
     Route: 048
     Dates: start: 20220421, end: 20220728
  3. SELINEXOR [Suspect]
     Active Substance: SELINEXOR
     Dosage: 60 MG, WEEKLY
     Route: 048
     Dates: start: 20220804, end: 20230615
  4. SELINEXOR [Suspect]
     Active Substance: SELINEXOR
     Dosage: 60 MG, WEEKLY
     Route: 048
     Dates: start: 20230621, end: 20231009
  5. SELINEXOR [Suspect]
     Active Substance: SELINEXOR
     Dosage: UNK
     Route: 048
     Dates: start: 20231018
  6. BORTEZOMIB [Suspect]
     Active Substance: BORTEZOMIB
     Indication: Plasma cell myeloma
     Dosage: 2.158 MG, WEEKLY
     Route: 058
     Dates: start: 20220301, end: 20230615
  7. BORTEZOMIB [Suspect]
     Active Substance: BORTEZOMIB
     Dosage: 2.158 MG, WEEKLY
     Route: 058
     Dates: start: 20230621
  8. DEXAMETHASONE [Suspect]
     Active Substance: DEXAMETHASONE
     Indication: Plasma cell myeloma
     Dosage: 20 MG, 2X/WEEK
     Route: 048
     Dates: start: 20220301, end: 20230615
  9. DEXAMETHASONE [Suspect]
     Active Substance: DEXAMETHASONE
     Dosage: 20 MG, 2X/WEEK
     Route: 048
     Dates: start: 20230621, end: 20231009
  10. DEXAMETHASONE [Suspect]
     Active Substance: DEXAMETHASONE
     Dosage: UNK
     Route: 048
     Dates: start: 20231018

REACTIONS (2)
  - Cataract [Recovered/Resolved]
  - Cataract [Recovering/Resolving]

NARRATIVE: CASE EVENT DATE: 20230612
